FAERS Safety Report 8543594-7 (Version None)
Quarter: 2012Q3

REPORT INFORMATION
  Report Type: 
  Country: None (occurrence: None)
  Receive Date: 20120727
  Receipt Date: 20120713
  Transmission Date: 20120928
  Serious: Yes (Hospitalization)
  Sender: FDA-Public Use
  Company Number: DE-MYLANLABS-2012S1014502

PATIENT
  Age: 40 Year
  Sex: Male

DRUGS (2)
  1. MIRTAZAPINE [Suspect]
     Route: 048
     Dates: start: 20120713, end: 20120713
  2. MIRTAZAPINE [Suspect]
     Route: 048
     Dates: start: 20120713, end: 20120713

REACTIONS (4)
  - COMA [None]
  - SUICIDE ATTEMPT [None]
  - INTENTIONAL OVERDOSE [None]
  - SOMNOLENCE [None]
